FAERS Safety Report 7075687-8 (Version None)
Quarter: 2010Q4

REPORT INFORMATION
  Report Type: 
  Country: None (occurrence: None)
  Receive Date: 20101031
  Receipt Date: 20101026
  Transmission Date: 20110411
  Serious: Yes (Hospitalization, Other)
  Sender: FDA-Public Use
  Company Number: FR-BRISTOL-MYERS SQUIBB COMPANY-15354939

PATIENT
  Age: 81 Year
  Sex: Female

DRUGS (5)
  1. COUMADIN [Suspect]
     Indication: THROMBOSIS
     Dates: end: 20100615
  2. PERINDOPRIL ERBUMINE [Concomitant]
  3. DEROXAT [Concomitant]
  4. FORLAX [Concomitant]
     Dosage: MACROGOL 4000
  5. LEXOMIL [Concomitant]

REACTIONS (6)
  - ASTHENIA [None]
  - DYSPNOEA [None]
  - GASTRODUODENAL ULCER [None]
  - HAEMOGLOBIN DECREASED [None]
  - MELAENA [None]
  - PALLOR [None]
